FAERS Safety Report 8315175-1 (Version None)
Quarter: 2012Q2

REPORT INFORMATION
  Report Type: 
  Country: None (occurrence: None)
  Receive Date: 20120426
  Receipt Date: 20120419
  Transmission Date: 20120825
  Serious: Yes (Hospitalization)
  Sender: FDA-Public Use
  Company Number: FR-GLAXOSMITHKLINE-B0774938A

PATIENT
  Sex: Female
  Weight: 65 kg

DRUGS (2)
  1. BEVACIZUMAB [Suspect]
     Indication: NEOPLASM
     Dosage: 7.5MGK EVERY TWO WEEKS
     Route: 042
     Dates: start: 20111221
  2. VOTRIENT [Suspect]
     Indication: NEOPLASM
     Dosage: 600MG PER DAY
     Route: 048
     Dates: start: 20111207

REACTIONS (1)
  - THROMBOTIC MICROANGIOPATHY [None]
